FAERS Safety Report 4751780-7 (Version None)
Quarter: 2005Q3

REPORT INFORMATION
  Report Type: 
  Country: None (occurrence: None)
  Receive Date: 20050823
  Receipt Date: 20050823
  Transmission Date: 20060218
  Serious: Yes (Life-Threatening, Hospitalization)
  Sender: FDA-Public Use
  Company Number: None

PATIENT
  Age: 69 Year
  Sex: Female
  Weight: 114.3065 kg

DRUGS (1)
  1. BEXTRA [Suspect]
     Dates: start: 20030317, end: 20041104

REACTIONS (2)
  - GENITAL RASH [None]
  - THROMBOSIS [None]
